FAERS Safety Report 7474578-8 (Version None)
Quarter: 2011Q2

REPORT INFORMATION
  Report Type: 
  Country: None (occurrence: None)
  Receive Date: 20110503
  Receipt Date: 20110421
  Transmission Date: 20111010
  Serious: Yes (Life-Threatening, Other)
  Sender: FDA-Public Use
  Company Number: TCI2011A02679

PATIENT
  Sex: Male

DRUGS (3)
  1. AMARYL [Suspect]
     Dosage: 6 MG (6 MG,1 D) PER ORAL
     Route: 048
  2. ACTOS [Suspect]
     Indication: DIABETES MELLITUS
     Dosage: 30 MG (30 MG,1 D) PER ORAL
     Route: 048
     Dates: end: 20110419
  3. BASEN (VOGLIBOSE) [Concomitant]

REACTIONS (3)
  - CEREBRAL ATROPHY [None]
  - CONVULSION [None]
  - HYPOGLYCAEMIC COMA [None]
